FAERS Safety Report 6616238-9 (Version None)
Quarter: 2010Q1

REPORT INFORMATION
  Report Type: 
  Country: None (occurrence: None)
  Receive Date: 20100305
  Receipt Date: 20100225
  Transmission Date: 20100710
  Serious: Yes (Other)
  Sender: FDA-Public Use
  Company Number: GXKR2010FR01609

PATIENT
  Age: 27 Year
  Sex: Male

DRUGS (4)
  1. METRONIDAZOLE [Suspect]
     Indication: CENTRAL NERVOUS SYSTEM ABSCESS
     Dosage: 1.5 G/DAY
     Route: 065
  2. TETRACOSIDE [Concomitant]
     Indication: CENTRAL NERVOUS SYSTEM ABSCESS
  3. CEFOTAXIME [Concomitant]
     Indication: CENTRAL NERVOUS SYSTEM ABSCESS
     Dosage: 12 G, UNK
  4. THIAMPHENICOL [Concomitant]
     Indication: CENTRAL NERVOUS SYSTEM ABSCESS

REACTIONS (6)
  - CENTRAL NERVOUS SYSTEM LESION [None]
  - CEREBELLAR SYNDROME [None]
  - DEPRESSED LEVEL OF CONSCIOUSNESS [None]
  - NEUROPATHY PERIPHERAL [None]
  - PARAESTHESIA [None]
  - PSYCHOMOTOR RETARDATION [None]
